FAERS Safety Report 18125773 (Version 16)
Quarter: 2020Q4

REPORT INFORMATION
  Report Type: Report from Study
  Country: KR (occurrence: KR)
  Receive Date: 20200807
  Receipt Date: 20201207
  Transmission Date: 20210113
  Serious: Yes (Death, Hospitalization)
  Sender: FDA-Public Use
  Company Number: KR-EISAI MEDICAL RESEARCH-EC-2020-078670

PATIENT
  Age: 60 Year
  Sex: Male
  Weight: 84.75 kg

DRUGS (7)
  1. DESOWEN [Concomitant]
     Active Substance: DESONIDE
     Dates: start: 20200630, end: 20200731
  2. ORODIPINE [Concomitant]
     Active Substance: AMLODIPINE OROTATE
     Dates: start: 201501
  3. PEMBROLIZUMAB. [Suspect]
     Active Substance: PEMBROLIZUMAB
     Indication: NON-SMALL CELL LUNG CANCER METASTATIC
     Route: 041
     Dates: start: 20200609, end: 20200609
  4. PEMBROLIZUMAB. [Suspect]
     Active Substance: PEMBROLIZUMAB
     Route: 041
     Dates: start: 20200630, end: 20200630
  5. GASMOTIN [Concomitant]
     Active Substance: MOSAPRIDE CITRATE
     Dates: start: 20200720, end: 20200731
  6. LENVATINIB [Suspect]
     Active Substance: LENVATINIB
     Indication: NON-SMALL CELL LUNG CANCER METASTATIC
     Route: 048
     Dates: start: 20200609, end: 20200720
  7. STILNOX [Concomitant]
     Active Substance: ZOLPIDEM TARTRATE
     Dates: start: 20200609, end: 20200731

REACTIONS (2)
  - Tracheo-oesophageal fistula [Not Recovered/Not Resolved]
  - Tumour haemorrhage [Fatal]

NARRATIVE: CASE EVENT DATE: 20200722
